FAERS Safety Report 24461038 (Version 1)
Quarter: 2024Q4

REPORT INFORMATION
  Report Type: Report from Study
  Country: US (occurrence: US)
  Receive Date: 20241018
  Receipt Date: 20241018
  Transmission Date: 20250115
  Serious: No
  Sender: ROCHE
  Company Number: US-ROCHE-3574419

PATIENT
  Age: 43 Year
  Sex: Female
  Weight: 78.93 kg

DRUGS (1)
  1. RITUXAN [Suspect]
     Active Substance: RITUXIMAB
     Indication: Granulomatosis with polyangiitis
     Dosage: ON DAY 1 + DAY 15 AND EVERY 24 WEEKS
     Route: 041
     Dates: start: 202306

REACTIONS (3)
  - Speech disorder [Unknown]
  - Dyspnoea [Unknown]
  - Off label use [Unknown]
